FAERS Safety Report 25957032 (Version 3)
Quarter: 2025Q4

REPORT INFORMATION
  Report Type: Report from Study
  Country: GB (occurrence: GB)
  Receive Date: 20251024
  Receipt Date: 20251105
  Transmission Date: 20260119
  Serious: Yes (Other)
  Sender: SAMSUNG BIOEPIS
  Company Number: GB-SAMSUNG BIOEPIS-SB-2025-30437

PATIENT
  Age: 67 Year
  Sex: Female

DRUGS (3)
  1. IMRALDI [Suspect]
     Active Substance: ADALIMUMAB
     Indication: Psoriatic arthropathy
     Dosage: 40MG/0.8ML;
     Route: 058
     Dates: start: 20250616
  2. IMRALDI [Suspect]
     Active Substance: ADALIMUMAB
     Dosage: 40MG/0.8ML;
     Route: 058
  3. METHOTREXATE [Suspect]
     Active Substance: METHOTREXATE
     Indication: Product used for unknown indication

REACTIONS (18)
  - Urinary retention [Unknown]
  - Psoriatic arthropathy [Unknown]
  - COVID-19 [Unknown]
  - Feeling hot [Unknown]
  - Dehydration [Recovered/Resolved]
  - Illness [Unknown]
  - Pain [Unknown]
  - Nausea [Unknown]
  - Hyperhidrosis [Unknown]
  - Burning sensation [Unknown]
  - Malaise [Unknown]
  - Exposure to SARS-CoV-2 [Unknown]
  - Diarrhoea [Recovered/Resolved]
  - Abdominal distension [Recovered/Resolved]
  - Alopecia [Unknown]
  - Sensitive skin [Unknown]
  - Functional gastrointestinal disorder [Unknown]
  - Renal disorder [Unknown]

NARRATIVE: CASE EVENT DATE: 20251001
